FAERS Safety Report 18188277 (Version 2)
Quarter: 2020Q3

REPORT INFORMATION
  Report Type: Report from Study
  Country: JP (occurrence: JP)
  Receive Date: 20200824
  Receipt Date: 20200901
  Transmission Date: 20201103
  Serious: Yes (Death, Other)
  Sender: FDA-Public Use
  Company Number: JP-SAKK-2020SA220720AA

PATIENT

DRUGS (7)
  1. IRINOTECAN HYDROCHLORIDE. [Concomitant]
     Active Substance: IRINOTECAN HYDROCHLORIDE
     Dosage: TWO CYCLES 80%; PER ONE CYCLE: 0.9
     Route: 065
  2. 5?FU KYOWA [Concomitant]
     Active Substance: FLUOROURACIL
     Indication: COLON CANCER
     Dosage: PER ONE CYCLE: 0.9
     Route: 065
     Dates: start: 20171227, end: 20171227
  3. AMLODIPINE [Concomitant]
     Active Substance: AMLODIPINE BESYLATE
     Indication: HYPERTENSION
     Dosage: 5 MG
     Route: 065
  4. 5?FU KYOWA [Concomitant]
     Active Substance: FLUOROURACIL
     Dosage: TWO CYCLES 80%; PER ONE CYCLE: 0.9
     Route: 065
  5. AFLIBERCEPT [Suspect]
     Active Substance: AFLIBERCEPT
     Indication: COLON CANCER
     Dosage: PER ONE CYCLE: 1.0
     Route: 041
     Dates: start: 20171227, end: 20180306
  6. LEVOFOLINATE CALCIUM [Concomitant]
     Active Substance: LEVOLEUCOVORIN CALCIUM
     Indication: COLON CANCER
     Dosage: UNK
     Route: 065
     Dates: start: 20171227
  7. IRINOTECAN HYDROCHLORIDE. [Concomitant]
     Active Substance: IRINOTECAN HYDROCHLORIDE
     Indication: COLON CANCER
     Dosage: PER ONE CYCLE: 0.9
     Route: 065
     Dates: start: 20171227, end: 20171227

REACTIONS (10)
  - Nervous system disorder [Unknown]
  - Vomiting [Unknown]
  - Death [Fatal]
  - Protein urine present [Unknown]
  - Nausea [Unknown]
  - Constipation [Unknown]
  - Malaise [Unknown]
  - Diarrhoea [Unknown]
  - Decreased appetite [Unknown]
  - Hypertension [Unknown]

NARRATIVE: CASE EVENT DATE: 20180529
